FAERS Safety Report 10424240 (Version 2)
Quarter: 2014Q4

REPORT INFORMATION
  Report Type: Report from Study
  Country: CA (occurrence: CA)
  Receive Date: 20140902
  Receipt Date: 20141020
  Transmission Date: 20150528
  Serious: Yes (Hospitalization, Other)
  Sender: FDA-Public Use
  Company Number: CA-PFIZER INC-2014241007

PATIENT
  Age: 28 Year
  Sex: Female
  Weight: 45 kg

DRUGS (7)
  1. PANTOLOC [Concomitant]
     Active Substance: PANTOPRAZOLE SODIUM
  2. HEPARIN SODIUM. [Suspect]
     Active Substance: HEPARIN SODIUM
     Route: 065
  3. SALOFALK [Concomitant]
     Active Substance: MESALAMINE
  4. REMICADE [Suspect]
     Active Substance: INFLIXIMAB
     Dosage: 530 MG, 1 EVERY 5 WEEKS
     Route: 042
  5. REMICADE [Suspect]
     Active Substance: INFLIXIMAB
     Dosage: 250 MG, 1 EVERY 5 WEEKS
     Route: 042
  6. PREDNISONE. [Concomitant]
     Active Substance: PREDNISONE
  7. IRON [Concomitant]
     Active Substance: IRON

REACTIONS (4)
  - Colitis [Recovering/Resolving]
  - Deep vein thrombosis [Recovering/Resolving]
  - Rectal haemorrhage [Recovering/Resolving]
  - Haemoglobin decreased [Recovering/Resolving]
